FAERS Safety Report 5207977-5 (Version None)
Quarter: 2007Q1

REPORT INFORMATION
  Report Type: 
  Country: None (occurrence: None)
  Receive Date: 20070115
  Receipt Date: 20070104
  Transmission Date: 20070707
  Serious: Yes (Life-Threatening, Hospitalization)
  Sender: FDA-Public Use
  Company Number: GR-JNJFOC-20061104334

PATIENT
  Age: 47 Year
  Sex: Female
  Weight: 62 kg

DRUGS (6)
  1. REMICADE [Suspect]
     Indication: PSORIATIC ARTHROPATHY
     Dosage: INFUSIONS ON 0, 2, 6 AND 8 WEEK
     Route: 042
  2. METHOTREXATE [Suspect]
     Indication: PSORIATIC ARTHROPATHY
     Route: 048
  3. THYROHORMONE [Concomitant]
     Route: 048
  4. PREZOLON [Concomitant]
     Indication: RHEUMATOID ARTHRITIS
     Route: 048
  5. DIOVAN [Concomitant]
     Indication: HYPERTENSION
     Route: 048
  6. ZURCAZOL [Concomitant]
     Indication: GASTROINTESTINAL DISORDER THERAPY
     Route: 048

REACTIONS (2)
  - HODGKIN'S DISEASE [None]
  - THYROID NEOPLASM [None]
